FAERS Safety Report 10222783 (Version 1)
Quarter: 2014Q2

REPORT INFORMATION
  Report Type: Report from Study
  Country: US (occurrence: US)
  Receive Date: 20140606
  Receipt Date: 20140606
  Transmission Date: 20141212
  Serious: Yes (Death)
  Sender: FDA-Public Use
  Company Number: US-BAXTER-2014BAX029206

PATIENT
  Sex: 0

DRUGS (6)
  1. CYCLOPHOSPHAMIDE FOR INJECTION, USP [Suspect]
     Indication: APLASTIC ANAEMIA
     Route: 065
  2. FLUDARABINE [Suspect]
     Indication: APLASTIC ANAEMIA
     Route: 065
  3. EQUINE-ATG [Suspect]
     Indication: APLASTIC ANAEMIA
     Route: 065
  4. GRANULOCYTE COLONY-STIMULATING FACTOR NOS [Suspect]
     Indication: APLASTIC ANAEMIA
     Dosage: DAY 0
     Route: 065
  5. TACROLIMUS [Suspect]
     Indication: PROPHYLAXIS AGAINST GRAFT VERSUS HOST DISEASE
     Route: 065
  6. MYCOPHENOLATE MOFETIL [Suspect]
     Indication: PROPHYLAXIS AGAINST GRAFT VERSUS HOST DISEASE
     Route: 065

REACTIONS (1)
  - Encephalopathy [Fatal]
